FAERS Safety Report 14567789 (Version 1)
Quarter: 2018Q1

REPORT INFORMATION
  Report Type: Spontaneous
  Country: GR (occurrence: GR)
  Receive Date: 20180223
  Receipt Date: 20180223
  Transmission Date: 20180509
  Serious: Yes (Other)
  Sender: FDA-Public Use
  Company Number: GR-MYLANLABS-2018M1012054

PATIENT
  Age: 14 Year
  Sex: Female

DRUGS (2)
  1. SODIUM CHLORIDE. [Concomitant]
     Active Substance: SODIUM CHLORIDE
     Indication: HERPES SIMPLEX MENINGOENCEPHALITIS
     Dosage: DRUG WAS ADMINISTERED IN 100 ML OF 0.9% SODIUM CHLORIDE
     Route: 041
  2. ACICLOVIR [Suspect]
     Active Substance: ACYCLOVIR
     Indication: EVIDENCE BASED TREATMENT
     Dosage: 30 MG/KG/24 H IN THREE DIVIDED DOSES) WAS ADMINISTERED IN 100 ML OF 0.9% SODIUM CHLORIDE AS HOURL...
     Route: 041

REACTIONS (3)
  - Catheter site scar [Unknown]
  - Soft tissue necrosis [Recovered/Resolved with Sequelae]
  - Catheter site extravasation [Recovered/Resolved with Sequelae]
